FAERS Safety Report 6309084-7 (Version None)
Quarter: 2009Q3

REPORT INFORMATION
  Report Type: 
  Country: None (occurrence: None)
  Receive Date: 20090814
  Receipt Date: 20070606
  Transmission Date: 20100115
  Serious: Yes (Other)
  Sender: FDA-Public Use
  Company Number: US-ASTRAZENECA-2006UW08421

PATIENT
  Age: 51 Year
  Sex: Female
  Weight: 100.7 kg

DRUGS (16)
  1. SEROQUEL [Suspect]
     Indication: DEPRESSION
     Route: 048
     Dates: start: 19990101, end: 20050801
  2. SEROQUEL [Suspect]
     Dosage: 100 MG - 200 MG
     Route: 048
     Dates: start: 20010503
  3. XANAX [Concomitant]
     Dates: start: 19990928
  4. VASOTEC [Concomitant]
     Dates: start: 20040510
  5. SYNTHROID/ L-THYROXIN [Concomitant]
     Dates: start: 20040211
  6. ZOCOR [Concomitant]
     Dates: start: 20040510
  7. REMERON [Concomitant]
     Dates: start: 20040510
  8. LORAZEPAM [Concomitant]
     Route: 048
     Dates: start: 19980915
  9. LIPITOR [Concomitant]
     Dates: start: 20040211
  10. EFFEXOR XR [Concomitant]
     Dates: start: 20010405
  11. SINGULAIR [Concomitant]
     Dates: start: 20011203
  12. TRILEPTAL [Concomitant]
     Dates: start: 20050814
  13. IMIPRAMINE [Concomitant]
     Dates: start: 20050217
  14. CYMBALTA [Concomitant]
     Dates: start: 20050217
  15. ZOLOFT [Concomitant]
     Dates: start: 19990928
  16. ZANTAC [Concomitant]
     Dates: start: 19990425

REACTIONS (3)
  - DIABETES MELLITUS [None]
  - NEUROPATHY PERIPHERAL [None]
  - TYPE 2 DIABETES MELLITUS [None]
